FAERS Safety Report 8539588-8 (Version None)
Quarter: 2012Q3

REPORT INFORMATION
  Report Type: 
  Country: None (occurrence: None)
  Receive Date: 20120726
  Receipt Date: 20120713
  Transmission Date: 20120928
  Serious: Yes (Hospitalization, Other)
  Sender: FDA-Public Use
  Company Number: US-ELI_LILLY_AND_COMPANY-US201207004613

PATIENT
  Sex: Female

DRUGS (2)
  1. NOVOLOG [Concomitant]
  2. HUMALOG [Suspect]
     Indication: DIABETES MELLITUS
     Dosage: UNK UNK, PRN
     Dates: start: 19850101

REACTIONS (4)
  - POST PROCEDURAL INFECTION [None]
  - SURGERY [None]
  - ABDOMINAL HERNIA [None]
  - ANEURYSM [None]
